FAERS Safety Report 20228147 (Version 4)
Quarter: 2022Q1

REPORT INFORMATION
  Report Type: Report from Study
  Country: CL (occurrence: CL)
  Receive Date: 20211224
  Receipt Date: 20220216
  Transmission Date: 20220423
  Serious: Yes (Other)
  Sender: FDA-Public Use
  Company Number: CL-BRISTOL-MYERS SQUIBB COMPANY-BMS-2021-140425

PATIENT
  Age: 71 Year
  Sex: Male

DRUGS (2)
  1. APIXABAN [Suspect]
     Active Substance: APIXABAN
     Indication: Pulmonary embolism
     Dosage: 5 MILLIGRAM, QD
     Route: 065
     Dates: start: 20211118
  2. APIXABAN [Suspect]
     Active Substance: APIXABAN
     Indication: Deep vein thrombosis

REACTIONS (2)
  - Deep vein thrombosis [Unknown]
  - Off label use [Unknown]
